FAERS Safety Report 6194860-4 (Version None)
Quarter: 2009Q2

REPORT INFORMATION
  Report Type: 
  Country: None (occurrence: None)
  Receive Date: 20090519
  Receipt Date: 20070726
  Transmission Date: 20091009
  Serious: Yes (Other)
  Sender: FDA-Public Use
  Company Number: US-ASTRAZENECA-2007UW05650

PATIENT
  Age: 17734 Day
  Sex: Female
  Weight: 122.5 kg

DRUGS (33)
  1. SEROQUEL [Suspect]
     Indication: DEPRESSION
     Dosage: 25 MG INCREASING TO 200 MG
     Route: 048
     Dates: start: 20011101
  2. SEROQUEL [Suspect]
     Indication: INSOMNIA
     Dosage: 25 MG INCREASING TO 200 MG
     Route: 048
     Dates: start: 20011101
  3. SEROQUEL [Suspect]
     Indication: ANXIETY
     Dosage: 25 MG INCREASING TO 200 MG
     Route: 048
     Dates: start: 20011101
  4. SEROQUEL [Suspect]
     Dosage: 50-225MG
     Route: 048
     Dates: start: 20011114
  5. SEROQUEL [Suspect]
     Dosage: 50-225MG
     Route: 048
     Dates: start: 20011114
  6. SEROQUEL [Suspect]
     Dosage: 50-225MG
     Route: 048
     Dates: start: 20011114
  7. DIAZEPAM [Concomitant]
     Dosage: 5MG-10MG
     Route: 048
  8. LEXAPRO [Concomitant]
     Dosage: 10MG-20MG
     Route: 048
  9. NOVOLOG [Concomitant]
     Route: 065
  10. HYDROCODONE BITARTRATE AND ACETAMINOPHEN [Concomitant]
     Route: 048
  11. METHADONE [Concomitant]
     Route: 048
  12. DOCUSATE [Concomitant]
     Route: 065
  13. TRAMADOL HCL [Concomitant]
     Route: 065
  14. VYTORIN [Concomitant]
     Route: 065
  15. NITROGLYCERIN [Concomitant]
     Route: 060
  16. BENAZEPRIL HYDROCHLORIDE [Concomitant]
     Route: 065
  17. AMBIEN [Concomitant]
     Route: 065
  18. PREVACID [Concomitant]
     Route: 065
  19. LONOX [Concomitant]
     Route: 065
  20. COMBIVENT [Concomitant]
     Route: 055
  21. LOPERAMIDE HCL [Concomitant]
     Route: 065
  22. HYOSCYAMINE [Concomitant]
     Route: 065
  23. BYETTA [Concomitant]
     Route: 065
  24. METFORMIN HCL [Concomitant]
     Route: 065
  25. LYRICA [Concomitant]
     Dosage: 50MG-100MG
     Route: 065
  26. AMITRIPTLINE HYDROCHLORIDE TAB [Concomitant]
     Route: 065
  27. DIOVAN [Concomitant]
     Route: 065
  28. OMEPRAZOLE [Concomitant]
     Route: 065
  29. AVANDIA [Concomitant]
     Route: 065
  30. PROCRIT [Concomitant]
     Route: 065
  31. FUROSEMIDE [Concomitant]
     Route: 065
  32. FLUCONAZOLE [Concomitant]
     Route: 065
  33. ASPIRIN [Concomitant]
     Route: 048

REACTIONS (21)
  - ABDOMINAL PAIN [None]
  - ARTHRALGIA [None]
  - CAROTID ARTERY STENOSIS [None]
  - CHEST PAIN [None]
  - CONSTIPATION [None]
  - EAR PAIN [None]
  - FIBULA FRACTURE [None]
  - HALLUCINATION, AUDITORY [None]
  - JOINT SPRAIN [None]
  - MUSCLE SPASMS [None]
  - NASOPHARYNGITIS [None]
  - NEUROPATHY PERIPHERAL [None]
  - PAIN IN EXTREMITY [None]
  - PANIC ATTACK [None]
  - PARANOIA [None]
  - RASH [None]
  - RENAL CYST [None]
  - RENAL FAILURE [None]
  - RHINITIS ALLERGIC [None]
  - SYNCOPE [None]
  - TYPE 2 DIABETES MELLITUS [None]
